FAERS Safety Report 6077765-9 (Version None)
Quarter: 2009Q1

REPORT INFORMATION
  Report Type: 
  Country: None (occurrence: None)
  Receive Date: 20090213
  Receipt Date: 20090202
  Transmission Date: 20090719
  Serious: Yes (Hospitalization)
  Sender: FDA-Public Use
  Company Number: JP-PFIZER INC-2008085539

PATIENT
  Age: 52 Year
  Sex: Male

DRUGS (2)
  1. NIFEDIPINE [Suspect]
  2. OLMETEC [Suspect]

REACTIONS (1)
  - DYSPNOEA EXERTIONAL [None]
